FAERS Safety Report 21116788 (Version 3)
Quarter: 2022Q3

REPORT INFORMATION
  Report Type: Spontaneous
  Country: US (occurrence: US)
  Receive Date: 20220722
  Receipt Date: 20220902
  Transmission Date: 20221026
  Serious: Yes (Hospitalization, Other)
  Sender: FDA-Public Use
  Company Number: US-TEVA-2022-US-2055400

PATIENT
  Age: 51 Year
  Sex: Male

DRUGS (1)
  1. PROAIR HFA [Suspect]
     Active Substance: ALBUTEROL SULFATE
     Indication: Product used for unknown indication
     Dosage: 90 MCG/DOSE, INHALATION METERED DOSE AEROSOL
     Route: 065

REACTIONS (3)
  - Illness [Unknown]
  - Lung disorder [Unknown]
  - Speech disorder [Unknown]
